FAERS Safety Report 5140407-0 (Version None)
Quarter: 2006Q4

REPORT INFORMATION
  Report Type: 
  Country: None (occurrence: None)
  Receive Date: 20061031
  Receipt Date: 20051115
  Transmission Date: 20070319
  Serious: Yes (Death, Hospitalization)
  Sender: FDA-Public Use
  Company Number: FR-SANOFI-SYNTHELABO-F01200502427

PATIENT
  Sex: Male

DRUGS (8)
  1. GEMZAR [Suspect]
     Route: 042
     Dates: start: 20051020, end: 20051020
  2. OXALIPLATIN [Suspect]
     Indication: PANCREATIC CARCINOMA METASTATIC
     Route: 042
     Dates: start: 20051020, end: 20051020
  3. ZOLPIDEM TARTRATE [Concomitant]
  4. TAHOR [Concomitant]
  5. ATARAX [Concomitant]
  6. COZAAR [Concomitant]
  7. LOPRESSOR [Concomitant]
  8. HUMALOG [Concomitant]

REACTIONS (2)
  - ASTHENIA [None]
  - GENERAL PHYSICAL HEALTH DETERIORATION [None]
